FAERS Safety Report 5637839-0 (Version None)
Quarter: 2008Q2

REPORT INFORMATION
  Report Type: 
  Country: None (occurrence: None)
  Receive Date: 20080220
  Receipt Date: 20080212
  Transmission Date: 20081010
  Serious: Yes (Death, Hospitalization)
  Sender: FDA-Public Use
  Company Number: 163-21880-07061373

PATIENT
  Age: 55 Year
  Sex: Male

DRUGS (25)
  1. REVLIMID [Suspect]
     Indication: MULTIPLE MYELOMA
     Dosage: 25 MG, QD X 21D WITH DEXAMETHASONE 7D OFF, ORAL; 15 MG, 1 IN 1 D, ORAL
     Route: 048
     Dates: start: 20070602, end: 20070615
  2. REVLIMID [Suspect]
     Indication: MULTIPLE MYELOMA
     Dosage: 25 MG, QD X 21D WITH DEXAMETHASONE 7D OFF, ORAL; 15 MG, 1 IN 1 D, ORAL
     Route: 048
     Dates: start: 20070601, end: 20070618
  3. DEXAMETHASONE TAB [Suspect]
     Indication: MULTIPLE MYELOMA
     Dates: start: 20070602
  4. GABAPENTIN [Concomitant]
  5. NEXIUM [Concomitant]
  6. SENOKOT S (COLOXYL WITH SENNA) [Concomitant]
  7. FOLIC ACID [Concomitant]
  8. PHYTONADIONE [Concomitant]
  9. VITAMIN B12 [Concomitant]
  10. METOPROLOL TARTRATE [Concomitant]
  11. ACYCLOVIR [Concomitant]
  12. FLUCONAZOLE [Concomitant]
  13. CYCLOBENZAPRINE [Concomitant]
  14. ALLOPURINOL [Concomitant]
  15. FUROSEMIDE [Concomitant]
  16. TRAZODONE (TRAZODONE) (50 MILLIGRAM) [Concomitant]
  17. OXYCODONE HCL ER (OXYCODONE HYDROCHLORIDE) [Concomitant]
  18. OXYCODONE HCL (OXYCODONE HYDROCHLORIDE) [Concomitant]
  19. GLYCOLAX (MACROGOL) [Concomitant]
  20. GAS X (DIMETICONE, ACTIVATED) [Concomitant]
  21. POTASSIUM CHLORIDE [Concomitant]
  22. MOM (MAGNESIUM HYDROXIDE) [Concomitant]
  23. CALTRATE + D (LEKOVIT CA) [Concomitant]
  24. TUMS (CALCIUM CARBONATE) [Concomitant]
  25. NEUPOGEN [Concomitant]

REACTIONS (3)
  - MENINGORRHAGIA [None]
  - NEUTROPENIA [None]
  - THROMBOCYTOPENIA [None]
